FAERS Safety Report 7127034-0 (Version None)
Quarter: 2010Q4

REPORT INFORMATION
  Report Type: 
  Country: None (occurrence: None)
  Receive Date: 20101129
  Receipt Date: 20100105
  Transmission Date: 20110411
  Serious: No
  Sender: FDA-Public Use
  Company Number: US-PFIZER INC-2010002078

PATIENT
  Sex: Male

DRUGS (1)
  1. VIAGRA [Suspect]
     Indication: PROSTATIC OPERATION
     Dates: start: 20091101, end: 20091201

REACTIONS (1)
  - DRUG INEFFECTIVE [None]
